FAERS Safety Report 10157341 (Version 2)
Quarter: 2014Q2

REPORT INFORMATION
  Report Type: Spontaneous
  Country: US (occurrence: US)
  Receive Date: 20140507
  Receipt Date: 20140507
  Transmission Date: 20141212
  Serious: Yes (Hospitalization)
  Sender: FDA-Public Use
  Company Number: US-LUNDBECK-DKLU1096355

PATIENT
  Age: 1 Year
  Sex: Male
  Weight: 8 kg

DRUGS (3)
  1. SABRIL (FOR ORAL SOLUTION) [Suspect]
     Indication: INFANTILE SPASMS
     Route: 048
  2. LEVOCARNITINE [Concomitant]
     Indication: INFANTILE SPASMS
     Route: 048
  3. VALPROIC ACID [Concomitant]
     Indication: CONVULSION
     Route: 048

REACTIONS (2)
  - Hypoxia [Unknown]
  - Parainfluenzae virus infection [Unknown]
